FAERS Safety Report 5456086-9 (Version None)
Quarter: 2007Q3

REPORT INFORMATION
  Report Type: 
  Country: None (occurrence: None)
  Receive Date: 20070918
  Receipt Date: 20070228
  Transmission Date: 20080115
  Serious: Yes (Hospitalization)
  Sender: FDA-Public Use
  Company Number: US-ASTRAZENECA-2006UW23782

PATIENT
  Age: 17646 Day
  Sex: Female
  Weight: 81.8 kg

DRUGS (5)
  1. SEROQUEL [Suspect]
     Indication: DEPRESSION
     Route: 048
     Dates: start: 20060111, end: 20060202
  2. SEROQUEL [Suspect]
     Indication: HALLUCINATION, AUDITORY
     Route: 048
     Dates: start: 20060111, end: 20060202
  3. GEODON [Concomitant]
     Dates: start: 20020123
  4. RISPERDAL [Concomitant]
     Dates: start: 20020916
  5. CITALOPRAM [Concomitant]

REACTIONS (1)
  - DIABETES MELLITUS [None]
